FAERS Safety Report 4448434-3 (Version None)
Quarter: 2004Q3

REPORT INFORMATION
  Report Type: 
  Country: None (occurrence: None)
  Receive Date: 20040909
  Receipt Date: 20040909
  Transmission Date: 20050211
  Serious: No
  Sender: FDA-Public Use
  Company Number: None

PATIENT
  Age: 81 Year
  Sex: Male
  Weight: 80.7 kg

DRUGS (9)
  1. TOPIRMATE [Suspect]
     Indication: PAIN
  2. PROPOXYPHENE N 100/APAP [Concomitant]
  3. ATENOLOL [Concomitant]
  4. SIMVASTATIN [Concomitant]
  5. PAROXETINE HCL [Concomitant]
  6. CARBAMIDE PEROXIDE [Concomitant]
  7. HYDROCHLOROTHIAZIDE [Concomitant]
  8. RANITIDINE HCL [Concomitant]
  9. CHLORPHENIRAMINE MALEATE [Concomitant]

REACTIONS (1)
  - HYPOKALAEMIA [None]
